FAERS Safety Report 25489790 (Version 1)
Quarter: 2025Q2

REPORT INFORMATION
  Report Type: Spontaneous
  Country: CN (occurrence: CN)
  Receive Date: 20250627
  Receipt Date: 20250627
  Transmission Date: 20250717
  Serious: Yes (Hospitalization)
  Sender: PFIZER
  Company Number: CN-PFIZER INC-PV202500076472

PATIENT
  Age: 59 Year
  Sex: Male

DRUGS (1)
  1. CYTARABINE [Suspect]
     Active Substance: CYTARABINE
     Indication: Acute myeloid leukaemia
     Dosage: 4.700 G, 2X/DAY
     Route: 041
     Dates: start: 20250513, end: 20250515

REACTIONS (4)
  - Myelosuppression [Recovering/Resolving]
  - Infection [Recovering/Resolving]
  - Rash erythematous [Recovering/Resolving]
  - Tongue blistering [Unknown]

NARRATIVE: CASE EVENT DATE: 20250513
